FAERS Safety Report 5235577-X (Version None)
Quarter: 2007Q1

REPORT INFORMATION
  Report Type: 
  Country: None (occurrence: None)
  Receive Date: 20061208
  Receipt Date: 20060213
  Transmission Date: 20070707
  Serious: Yes (Other)
  Sender: FDA-Public Use
  Company Number: 2006UW02440

PATIENT
  Age: 77 Year
  Sex: Female
  Weight: 62.595 kg

DRUGS (2)
  1. CRESTOR [Suspect]
     Indication: BLOOD CHOLESTEROL INCREASED
     Dosage: 10 MG QD PO
     Route: 048
     Dates: start: 20040301, end: 20051010
  2. THYROID TAB [Concomitant]

REACTIONS (4)
  - CHROMATURIA [None]
  - GASTRITIS [None]
  - PAIN IN EXTREMITY [None]
  - PYREXIA [None]
